FAERS Safety Report 9358336 (Version 1)
Quarter: 2013Q2

REPORT INFORMATION
  Report Type: Spontaneous
  Country: US (occurrence: US)
  Receive Date: 20130620
  Receipt Date: 20130620
  Transmission Date: 20140414
  Serious: No
  Sender: FDA-Public Use
  Company Number: US-US-EMD SERONO, INC.-7069061

PATIENT
  Age: 50 Year
  Sex: Female

DRUGS (4)
  1. REBIF [Suspect]
     Indication: PRODUCT USED FOR UNKNOWN INDICATION
     Dates: start: 20110617
  2. REBIF [Suspect]
     Dates: start: 20110629
  3. REBIF [Suspect]
     Dates: end: 20110706
  4. REBIF [Suspect]

REACTIONS (3)
  - Oropharyngeal pain [Recovered/Resolved]
  - Headache [Unknown]
  - Inappropriate schedule of drug administration [Unknown]
